FAERS Safety Report 5288465-7 (Version None)
Quarter: 2007Q2

REPORT INFORMATION
  Report Type: 
  Country: None (occurrence: None)
  Receive Date: 20070405
  Receipt Date: 20070327
  Transmission Date: 20071010
  Serious: Yes (Other)
  Sender: FDA-Public Use
  Company Number: JP-ROCHE-490693

PATIENT
  Age: 29 Year
  Sex: Female

DRUGS (2)
  1. TAMIFLU [Suspect]
     Indication: INFLUENZA
     Route: 048
     Dates: start: 20070302, end: 20070306
  2. CALONAL [Concomitant]

REACTIONS (2)
  - CONTUSION [None]
  - PSYCHIATRIC SYMPTOM [None]
